FAERS Safety Report 5241322-4 (Version None)
Quarter: 2007Q1

REPORT INFORMATION
  Report Type: 
  Country: None (occurrence: None)
  Receive Date: 20070220
  Receipt Date: 20070209
  Transmission Date: 20070707
  Serious: Yes (Other)
  Sender: FDA-Public Use
  Company Number: GB-JNJFOC-20061003179

PATIENT
  Age: 34 Year
  Sex: Male

DRUGS (2)
  1. TOPAMAX [Suspect]
     Route: 065
  2. TOPAMAX [Suspect]
     Indication: EPILEPSY
     Route: 065

REACTIONS (1)
  - NEUTROPENIA [None]
